FAERS Safety Report 17515535 (Version 1)
Quarter: 2020Q1

REPORT INFORMATION
  Report Type: Spontaneous
  Country: US (occurrence: US)
  Receive Date: 20200309
  Receipt Date: 20200309
  Transmission Date: 20200409
  Serious: No
  Sender: FDA-Public Use
  Company Number: US-MYLANLABS-2020M1021710

PATIENT
  Age: 82 Year
  Sex: Female
  Weight: 50 kg

DRUGS (2)
  1. ESTRADIOL VAGINAL CREAM USP [Suspect]
     Active Substance: ESTRADIOL
     Indication: VULVOVAGINAL DRYNESS
     Dosage: 1 GRAM, QD FOR 7 DAYS AND THEN 2-3 TIMES A WEEK
     Route: 067
     Dates: start: 20200214, end: 20200217
  2. ESTRADIOL VAGINAL CREAM USP [Suspect]
     Active Substance: ESTRADIOL
     Indication: HORMONE REPLACEMENT THERAPY

REACTIONS (5)
  - Feeling abnormal [Recovered/Resolved]
  - Dizziness [Recovered/Resolved]
  - Asthenia [Recovered/Resolved]
  - Palpitations [Recovered/Resolved]
  - Wrong technique in product usage process [Recovered/Resolved]
